FAERS Safety Report 5968278-0 (Version None)
Quarter: 2008Q4

REPORT INFORMATION
  Report Type: 
  Country: None (occurrence: None)
  Receive Date: 20081126
  Receipt Date: 20081120
  Transmission Date: 20090506
  Serious: Yes (Other)
  Sender: FDA-Public Use
  Company Number: US-JNJFOC-20081105309

PATIENT
  Age: 39 Year
  Sex: Female
  Weight: 83.01 kg

DRUGS (2)
  1. EXTRA STRENGTH TYLENOL [Suspect]
     Indication: FIBROMYALGIA
     Route: 048
  2. EXTRA STRENGTH TYLENOL [Suspect]
     Indication: MIGRAINE
     Route: 048

REACTIONS (2)
  - HEPATOMEGALY [None]
  - INTENTIONAL OVERDOSE [None]
